FAERS Safety Report 7643462-9 (Version None)
Quarter: 2011Q3

REPORT INFORMATION
  Report Type: 
  Country: None (occurrence: None)
  Receive Date: 20110729
  Receipt Date: 20110721
  Transmission Date: 20111222
  Serious: Yes (Other)
  Sender: FDA-Public Use
  Company Number: US-JNJFOC-20110304605

PATIENT
  Sex: Female
  Weight: 53.98 kg

DRUGS (1)
  1. NUCYNTA [Suspect]
     Indication: PAIN
     Dosage: 50MG/1-2 TABLETS EVERY 4-6 HOURS/ORAL
     Route: 048
     Dates: start: 20110301, end: 20110301

REACTIONS (2)
  - EYE SWELLING [None]
  - HALLUCINATION [None]
